FAERS Safety Report 8770679 (Version 1)
Quarter: 2012Q4

REPORT INFORMATION
  Report Type: 
  Country: US (occurrence: US)
  Receive Date: 20120906
  Receipt Date: 20120906
  Transmission Date: 20130627
  Serious: Yes (Other)
  Sender: FDA-Public Use
  Company Number: PHHY2010US094806

PATIENT
  Age: 9 Week
  Sex: Male

DRUGS (5)
  1. CICLOSPORIN [Suspect]
     Indication: PROPHYLAXIS AGAINST GRAFT VERSUS HOST DISEASE
     Dosage: UNK
  2. PREDNISONE [Suspect]
     Dosage: UNK
  3. UNSPECIFIED INGREDIENT [Concomitant]
  4. CYTARABINE [Concomitant]
  5. CYCLOPHOSPHAMIDE [Concomitant]

REACTIONS (3)
  - Growth retardation [Unknown]
  - Graft versus host disease in skin [Unknown]
  - Diarrhoea [Unknown]
